FAERS Safety Report 12809209 (Version 2)
Quarter: 2016Q4

REPORT INFORMATION
  Report Type: Spontaneous
  Country: US (occurrence: US)
  Receive Date: 20161004
  Receipt Date: 20161107
  Transmission Date: 20170207
  Serious: No
  Sender: FDA-Public Use
  Company Number: US-ASTRAZENECA-2016SF02449

PATIENT
  Age: 21189 Day
  Sex: Female
  Weight: 68 kg

DRUGS (1)
  1. PULMICORT FLEXHALER [Suspect]
     Active Substance: BUDESONIDE
     Indication: ASTHMA
     Dosage: 180MCG 2 PUFFS, TWICE DAILY
     Route: 055
     Dates: start: 2001

REACTIONS (6)
  - Malaise [Unknown]
  - Dysphonia [Not Recovered/Not Resolved]
  - Drug dose omission [Recovered/Resolved]
  - Cough [Unknown]
  - Headache [Unknown]
  - Device failure [Unknown]

NARRATIVE: CASE EVENT DATE: 20160804
